FAERS Safety Report 13271808 (Version 1)
Quarter: 2017Q1

REPORT INFORMATION
  Report Type: Spontaneous
  Country: IT (occurrence: IT)
  Receive Date: 20170227
  Receipt Date: 20170227
  Transmission Date: 20170428
  Serious: Yes (Death, Hospitalization)
  Sender: FDA-Public Use
  Company Number: IT-ACCORD-048495

PATIENT
  Age: 67 Year
  Sex: Male

DRUGS (1)
  1. CAPECITABINE. [Suspect]
     Active Substance: CAPECITABINE
     Indication: COLON CANCER
     Dosage: ON 20-DEC-2016 INDICATION TO ADJUVANT TREATMENT WITH CAPECITABINE 1250 MG/M2 TWICE DAY FOR 14 DAYS,
     Route: 048
     Dates: start: 20161229, end: 20170110

REACTIONS (4)
  - Diarrhoea [Fatal]
  - Mucosal inflammation [Fatal]
  - Shock [Unknown]
  - Febrile neutropenia [Fatal]

NARRATIVE: CASE EVENT DATE: 20170110
